FAERS Safety Report 10430231 (Version 1)
Quarter: 2014Q3

REPORT INFORMATION
  Report Type: Spontaneous
  Country: US (occurrence: None)
  Receive Date: 20140808
  Receipt Date: 20140808
  Transmission Date: 20150326
  Serious: No
  Sender: FDA-Public Use
  Company Number: US-015632

PATIENT
  Age: 70 Year
  Sex: Male

DRUGS (1)
  1. PREPOPIK [Suspect]
     Active Substance: ANHYDROUS CITRIC ACID\MAGNESIUM OXIDE\SODIUM PICOSULFATE
     Indication: BOWEL PREPARATION
     Dosage: (FIRST PACKET: 5:00PM; SECOND PACKET: 2:30AM ORAL)
     Route: 048

REACTIONS (1)
  - Abdominal pain upper [None]
